FAERS Safety Report 14768938 (Version 1)
Quarter: 2018Q2

REPORT INFORMATION
  Report Type: Spontaneous
  Country: US (occurrence: US)
  Receive Date: 20180417
  Receipt Date: 20180417
  Transmission Date: 20180711
  Serious: Yes (Death)
  Sender: FDA-Public Use
  Company Number: US-ROCHE-2109621

PATIENT
  Age: 54 Year
  Sex: Female

DRUGS (14)
  1. SINGULAIR [Concomitant]
     Active Substance: MONTELUKAST SODIUM
  2. BUDESONIDE. [Concomitant]
     Active Substance: BUDESONIDE
     Route: 065
  3. ZYRTEC [Concomitant]
     Active Substance: CETIRIZINE HYDROCHLORIDE
  4. CYCLOBENZAPRIN [Concomitant]
     Active Substance: CYCLOBENZAPRINE
     Route: 065
  5. ESBRIET [Suspect]
     Active Substance: PIRFENIDONE
     Indication: IDIOPATHIC PULMONARY FIBROSIS
     Route: 048
  6. TUSSIONEX PENNKINETIC [Concomitant]
     Active Substance: CHLORPHENIRAMINE\HYDROCODONE
     Route: 065
  7. MEDROL [Concomitant]
     Active Substance: METHYLPREDNISOLONE
  8. OXYCODON [Concomitant]
     Active Substance: OXYCODONE
     Route: 065
  9. TEMAZEPAM. [Concomitant]
     Active Substance: TEMAZEPAM
     Route: 065
  10. IPRATROPIUM [Concomitant]
     Active Substance: IPRATROPIUM
     Route: 065
  11. CELLCEPT [Suspect]
     Active Substance: MYCOPHENOLATE MOFETIL\MYCOPHENOLATE MOFETIL HYDROCHLORIDE
     Indication: PRODUCT USED FOR UNKNOWN INDICATION
     Route: 065
  12. BROVANA [Concomitant]
     Active Substance: ARFORMOTEROL TARTRATE
     Route: 065
  13. DEXILANT [Concomitant]
     Active Substance: DEXLANSOPRAZOLE
     Route: 065
  14. GABAPENTIN. [Concomitant]
     Active Substance: GABAPENTIN
     Route: 065

REACTIONS (1)
  - Death [Fatal]

NARRATIVE: CASE EVENT DATE: 20180401
